FAERS Safety Report 5291089-9 (Version None)
Quarter: 2007Q2

REPORT INFORMATION
  Report Type: 
  Country: None (occurrence: None)
  Receive Date: 20070409
  Receipt Date: 20070407
  Transmission Date: 20071010
  Serious: Yes (Other)
  Sender: FDA-Public Use
  Company Number: GR-GENENTECH-237268

PATIENT
  Sex: Female

DRUGS (3)
  1. HERCEPTIN [Suspect]
     Indication: BREAST CANCER
     Route: 065
  2. ZOMETA [Suspect]
     Indication: BREAST CANCER
     Route: 065
  3. VINORELBINE [Concomitant]
     Indication: DRUG USE FOR UNKNOWN INDICATION
     Route: 065

REACTIONS (2)
  - RENAL IMPAIRMENT [None]
  - RESPIRATORY TRACT INFECTION [None]
